FAERS Safety Report 17982170 (Version 2)
Quarter: 2020Q3

REPORT INFORMATION
  Report Type: Spontaneous
  Country: US (occurrence: US)
  Receive Date: 20200706
  Receipt Date: 20200718
  Transmission Date: 20201103
  Serious: Yes (Death, Other)
  Sender: FDA-Public Use
  Company Number: US-AMGEN-USASP2020106792

PATIENT
  Sex: Female

DRUGS (1)
  1. EVENITY [Suspect]
     Active Substance: ROMOSOZUMAB-AQQG
     Indication: PRODUCT USED FOR UNKNOWN INDICATION
     Dosage: 210 MILLIGRAM, QMO
     Route: 058
     Dates: start: 20190910, end: 20200505

REACTIONS (3)
  - Renal failure [Fatal]
  - Sepsis [Fatal]
  - COVID-19 [Fatal]
